FAERS Safety Report 8255088-7 (Version None)
Quarter: 2012Q2

REPORT INFORMATION
  Report Type: 
  Country: None (occurrence: None)
  Receive Date: 20120403
  Receipt Date: 20120326
  Transmission Date: 20120825
  Serious: Yes (Other)
  Sender: FDA-Public Use
  Company Number: US-NOVOPROD-348108

PATIENT
  Age: 23 Year
  Sex: Female
  Weight: 68.027 kg

DRUGS (1)
  1. NOVOLOG [Suspect]
     Indication: TYPE 1 DIABETES MELLITUS
     Dosage: SLIDING SCALE
     Route: 058
     Dates: start: 20050101

REACTIONS (7)
  - PALPITATIONS [None]
  - LETHARGY [None]
  - DRUG EFFECT DECREASED [None]
  - POLLAKIURIA [None]
  - HYPERTENSION [None]
  - DEHYDRATION [None]
  - BLOOD GLUCOSE INCREASED [None]
